FAERS Safety Report 13214656 (Version 1)
Quarter: 2017Q1

REPORT INFORMATION
  Report Type: Spontaneous
  Country: US (occurrence: US)
  Receive Date: 20170210
  Receipt Date: 20170210
  Transmission Date: 20170428
  Serious: Yes (Hospitalization)
  Sender: FDA-Public Use
  Company Number: US-THE RITEDOSE CORPORATION-2016RIT000290

PATIENT
  Age: 72 Year
  Sex: Female
  Weight: 82.86 kg

DRUGS (2)
  1. ALBUTEROL SULFATE INHALATION SOLUTION [Suspect]
     Active Substance: ALBUTEROL SULFATE
     Indication: CHRONIC OBSTRUCTIVE PULMONARY DISEASE
     Dosage: 2.5 MG, BID
     Route: 055
     Dates: start: 20150117, end: 20150117
  2. INVESTIGATIONAL DRUG [Suspect]
     Active Substance: INVESTIGATIONAL PRODUCT
     Indication: HYPERTONIC BLADDER
     Dosage: UNK
     Dates: end: 20150117

REACTIONS (3)
  - Palpitations [Recovered/Resolved]
  - Product use issue [Unknown]
  - Wheezing [Unknown]

NARRATIVE: CASE EVENT DATE: 2015
